FAERS Safety Report 4282702-3 (Version None)
Quarter: 2004Q1

REPORT INFORMATION
  Report Type: 
  Country: None (occurrence: None)
  Receive Date: 20040130
  Receipt Date: 20030317
  Transmission Date: 20041129
  Serious: No
  Sender: FDA-Public Use
  Company Number: US-BRISTOL-MYERS SQUIBB COMPANY-12214532

PATIENT
  Age: 29 Year
  Sex: Female
  Weight: 68 kg

DRUGS (6)
  1. SERZONE [Suspect]
     Indication: DEPRESSION
     Route: 048
     Dates: start: 20030311, end: 20030311
  2. MINOCYCLINE HCL [Concomitant]
  3. LO/OVRAL [Concomitant]
     Dosage: TABLET
     Route: 048
  4. WELLBUTRIN SR [Concomitant]
  5. FLONASE [Concomitant]
  6. LEXAPRO [Concomitant]

REACTIONS (2)
  - HEADACHE [None]
  - PALPITATIONS [None]
